FAERS Safety Report 7038387-6 (Version None)
Quarter: 2010Q4

REPORT INFORMATION
  Report Type: 
  Country: None (occurrence: None)
  Receive Date: 20101011
  Receipt Date: 20100209
  Transmission Date: 20110411
  Serious: No
  Sender: FDA-Public Use
  Company Number: US-PFIZER INC-2009311521

PATIENT
  Sex: Female

DRUGS (4)
  1. GABAPENTIN [Suspect]
     Indication: HYPOAESTHESIA
     Dosage: UNK
     Dates: start: 20090201, end: 20090201
  2. GABAPENTIN [Suspect]
     Dosage: UNK
  3. LYRICA [Suspect]
     Indication: HYPOAESTHESIA
     Dosage: 50 MG, 2X/DAY
     Dates: start: 20091201, end: 20091215
  4. TOPAMAX [Concomitant]
     Dosage: UNK

REACTIONS (8)
  - CHEST PAIN [None]
  - COORDINATION ABNORMAL [None]
  - DIARRHOEA [None]
  - DIZZINESS [None]
  - GASTROINTESTINAL DISORDER [None]
  - INSOMNIA [None]
  - OEDEMA PERIPHERAL [None]
  - VOMITING [None]
